FAERS Safety Report 9371043 (Version 1)
Quarter: 2013Q2

REPORT INFORMATION
  Report Type: Report from Study
  Country: US (occurrence: US)
  Receive Date: 20130627
  Receipt Date: 20130627
  Transmission Date: 20140414
  Serious: Yes (Other)
  Sender: FDA-Public Use
  Company Number: US-PFIZER INC-2013191224

PATIENT
  Age: 50 Year
  Sex: Female

DRUGS (3)
  1. ENBREL [Suspect]
     Indication: RHEUMATOID ARTHRITIS
     Dosage: 25 MG, 2X/WEEK
     Dates: start: 20041108
  2. METHOTREXATE SODIUM [Suspect]
     Dosage: UNK
     Dates: end: 201305
  3. ORENCIA [Concomitant]
     Dosage: UNK

REACTIONS (5)
  - Pneumonia [Recovered/Resolved]
  - Injection site pain [Recovered/Resolved]
  - Injection site nodule [Recovered/Resolved]
  - Hepatic enzyme increased [Recovered/Resolved]
  - Arthritis [Not Recovered/Not Resolved]
